FAERS Safety Report 24691172 (Version 2)
Quarter: 2025Q3

REPORT INFORMATION
  Report Type: Spontaneous
  Country: EU (occurrence: EU)
  Receive Date: 20241203
  Receipt Date: 20250827
  Transmission Date: 20251020
  Serious: Yes (Other)
  Sender: PFIZER
  Company Number: EU-PFIZER INC-PV202400153678

PATIENT
  Age: 64 Year
  Sex: Male

DRUGS (14)
  1. INFLIXIMAB [Suspect]
     Active Substance: INFLIXIMAB
     Indication: Pouchitis
  2. INFLIXIMAB [Suspect]
     Active Substance: INFLIXIMAB
     Indication: Cuffitis
  3. AZATHIOPRINE [Suspect]
     Active Substance: AZATHIOPRINE
     Indication: Pouchitis
  4. AZATHIOPRINE [Suspect]
     Active Substance: AZATHIOPRINE
     Indication: Cuffitis
  5. MERCAPTOPURINE [Suspect]
     Active Substance: MERCAPTOPURINE
     Indication: Pouchitis
  6. MERCAPTOPURINE [Suspect]
     Active Substance: MERCAPTOPURINE
     Indication: Cuffitis
  7. BUDESONIDE [Suspect]
     Active Substance: BUDESONIDE
     Indication: Pouchitis
  8. BUDESONIDE [Suspect]
     Active Substance: BUDESONIDE
     Indication: Cuffitis
  9. ADALIMUMAB [Suspect]
     Active Substance: ADALIMUMAB
     Indication: Pouchitis
  10. ADALIMUMAB [Suspect]
     Active Substance: ADALIMUMAB
     Indication: Cuffitis
  11. VEDOLIZUMAB [Suspect]
     Active Substance: VEDOLIZUMAB
     Indication: Pouchitis
  12. VEDOLIZUMAB [Suspect]
     Active Substance: VEDOLIZUMAB
     Indication: Cuffitis
  13. USTEKINUMAB [Suspect]
     Active Substance: USTEKINUMAB
     Indication: Pouchitis
  14. USTEKINUMAB [Suspect]
     Active Substance: USTEKINUMAB
     Indication: Cuffitis

REACTIONS (1)
  - Drug specific antibody present [Recovered/Resolved]
